FAERS Safety Report 4604947-2 (Version None)
Quarter: 2005Q1

REPORT INFORMATION
  Report Type: 
  Country: None (occurrence: None)
  Receive Date: 20050311
  Receipt Date: 20050303
  Transmission Date: 20050727
  Serious: Yes (Hospitalization)
  Sender: FDA-Public Use
  Company Number: US-JNJFOC-20050301727

PATIENT
  Sex: Female

DRUGS (2)
  1. DURAGESIC-100 [Suspect]
     Route: 062
     Dates: start: 20031101
  2. DURAGESIC-100 [Suspect]
     Route: 062
     Dates: start: 20031101

REACTIONS (7)
  - ANOREXIA [None]
  - FEELING COLD [None]
  - FEELING HOT [None]
  - HEADACHE [None]
  - MUSCLE SPASMS [None]
  - SPINAL DISORDER [None]
  - WEIGHT DECREASED [None]
